FAERS Safety Report 12660861 (Version 2)
Quarter: 2016Q3

REPORT INFORMATION
  Report Type: Spontaneous
  Country: US (occurrence: US)
  Receive Date: 20160817
  Receipt Date: 20160901
  Transmission Date: 20161109
  Serious: No
  Sender: FDA-Public Use
  Company Number: US-RELYPSA-RLY2016001264

PATIENT
  Sex: Male

DRUGS (13)
  1. HYDROCHLOROTHIAZIDE. [Concomitant]
     Active Substance: HYDROCHLOROTHIAZIDE
  2. LOPRESSOR HCT [Concomitant]
     Active Substance: HYDROCHLOROTHIAZIDE\METOPROLOL TARTRATE
  3. OSTEO BI-FLEX                      /01431201/ [Concomitant]
  4. PREDNISONE. [Concomitant]
     Active Substance: PREDNISONE
  5. VELTASSA [Suspect]
     Active Substance: PATIROMER
     Indication: HYPERKALAEMIA
     Dosage: 8.4 G, UNK
     Route: 048
     Dates: start: 20160330
  6. TESTOSTERONE. [Concomitant]
     Active Substance: TESTOSTERONE
  7. LISINOPRIL. [Concomitant]
     Active Substance: LISINOPRIL
  8. MULTIVITAMIN                       /00097801/ [Concomitant]
     Active Substance: VITAMINS
  9. NORCO [Concomitant]
     Active Substance: ACETAMINOPHEN\HYDROCODONE BITARTRATE
  10. NASONEX [Concomitant]
     Active Substance: MOMETASONE FUROATE
  11. ASPIRIN                            /00002701/ [Concomitant]
     Active Substance: ASPIRIN
  12. ADALAT CC [Concomitant]
     Active Substance: NIFEDIPINE
  13. LIMBREL [Concomitant]
     Active Substance: FLAVOCOXID

REACTIONS (3)
  - Abdominal distension [Unknown]
  - Flatulence [Unknown]
  - Diarrhoea [Unknown]
